FAERS Safety Report 15419163 (Version 3)
Quarter: 2019Q3

REPORT INFORMATION
  Report Type: Report from Study
  Country: US (occurrence: US)
  Receive Date: 20180924
  Receipt Date: 20190923
  Transmission Date: 20191004
  Serious: No
  Sender: FDA-Public Use
  Company Number: US-INCYTE CORPORATION-2018IN008342

PATIENT

DRUGS (8)
  1. JAKAFI [Suspect]
     Active Substance: RUXOLITINIB
     Indication: MYELOFIBROSIS
     Dosage: 20 MILLIGRAM, BID
     Route: 048
     Dates: start: 20170717
  2. JAKAFI [Suspect]
     Active Substance: RUXOLITINIB
     Dosage: 15 MG BID (MONDAY-WEDNESDAY-FRIDAY)
     Route: 048
     Dates: start: 20170723
  3. JAKAFI [Suspect]
     Active Substance: RUXOLITINIB
     Dosage: 15 MG BID (MONDAY THROUGH FRIDAY)
     Route: 048
  4. JAKAFI [Suspect]
     Active Substance: RUXOLITINIB
     Dosage: 15 MG BID (M,W,F), 15 MG QD (T,TH), OFF (SAT,SUN)
     Route: 048
     Dates: start: 20170723
  5. JAKAFI [Suspect]
     Active Substance: RUXOLITINIB
     Dosage: 20 MG BID (MONDAY-WEDNESDAY-FRIDAY), 20 MG QD (TUESDAY AND THURSDAY)
     Route: 065
     Dates: start: 20190807
  6. IBUPROFEN. [Concomitant]
     Active Substance: IBUPROFEN
     Indication: PRODUCT USED FOR UNKNOWN INDICATION
     Route: 065
  7. GABAPENTIN. [Concomitant]
     Active Substance: GABAPENTIN
     Indication: PRODUCT USED FOR UNKNOWN INDICATION
     Route: 065
  8. JAKAFI [Suspect]
     Active Substance: RUXOLITINIB
     Dosage: 20 MILLIGRAM, BID (MONDAY, TUESDAY AND FRIDAY) AND 20 MILLIGRAM, QD (TUESDAY AND THURSDAY)
     Route: 048
     Dates: start: 20180901

REACTIONS (4)
  - Injection site bruising [Unknown]
  - Haemoglobin increased [Unknown]
  - Haemoglobin decreased [Unknown]
  - Libido decreased [Not Recovered/Not Resolved]

NARRATIVE: CASE EVENT DATE: 20190807
